FAERS Safety Report 8160722-6 (Version None)
Quarter: 2012Q1

REPORT INFORMATION
  Report Type: 
  Country: None (occurrence: None)
  Receive Date: 20120223
  Receipt Date: 20120213
  Transmission Date: 20120608
  Serious: Yes (Hospitalization, Other)
  Sender: FDA-Public Use
  Company Number: PHEH2012US003655

PATIENT
  Sex: Male

DRUGS (1)
  1. TASIGNA [Suspect]
     Indication: LEUKAEMIA
     Dosage: 400 MG, ONCE DAILY
     Route: 048

REACTIONS (3)
  - MULTI-ORGAN FAILURE [None]
  - CARDIAC FLUTTER [None]
  - HEARING IMPAIRED [None]
